FAERS Safety Report 21257135 (Version 2)
Quarter: 2022Q4

REPORT INFORMATION
  Report Type: Spontaneous
  Country: US (occurrence: US)
  Receive Date: 20220826
  Receipt Date: 20221006
  Transmission Date: 20230112
  Serious: No
  Sender: FDA-Public Use
  Company Number: US-GSKCCFUS-Case-01475559_AE-84344

PATIENT
  Age: 70 Year
  Sex: Female
  Weight: 68.934 kg

DRUGS (3)
  1. BENLYSTA [Suspect]
     Active Substance: BELIMUMAB
     Indication: Systemic lupus erythematosus
     Dosage: 700 MG
     Route: 042
     Dates: start: 20220608
  2. BENLYSTA [Suspect]
     Active Substance: BELIMUMAB
     Dosage: 700 MG
     Route: 042
     Dates: start: 20220817
  3. BENLYSTA [Suspect]
     Active Substance: BELIMUMAB
     Dosage: 700 MG
     Route: 042
     Dates: start: 20220914

REACTIONS (2)
  - Hypoglycaemia [Recovered/Resolved]
  - Blood glucose decreased [Recovered/Resolved]

NARRATIVE: CASE EVENT DATE: 20220608
